FAERS Safety Report 5738068-2 (Version None)
Quarter: 2008Q2

REPORT INFORMATION
  Report Type: 
  Country: None (occurrence: None)
  Receive Date: 20080514
  Receipt Date: 20080507
  Transmission Date: 20081010
  Serious: Yes (Other)
  Sender: FDA-Public Use
  Company Number: FR-JNJFOC-20080501041

PATIENT
  Age: 52 Year
  Sex: Female

DRUGS (3)
  1. RISPERDAL [Suspect]
     Route: 048
  2. RISPERDAL [Suspect]
     Indication: DELUSION
     Route: 048
  3. LEVOTHYROXINE SODIUM [Concomitant]

REACTIONS (4)
  - ELECTROCARDIOGRAM QT PROLONGED [None]
  - PHLEBITIS [None]
  - VENTRICULAR EXTRASYSTOLES [None]
  - VERTIGO [None]
